FAERS Safety Report 12929159 (Version 2)
Quarter: 2018Q4

REPORT INFORMATION
  Report Type: Spontaneous
  Country: BR (occurrence: BR)
  Receive Date: 20161110
  Receipt Date: 20181114
  Transmission Date: 20190204
  Serious: Yes (Other)
  Sender: FDA-Public Use
  Company Number: BR-PFIZER INC-2016520451

PATIENT
  Age: 34 Year
  Sex: Female

DRUGS (2)
  1. FRONTAL XR [Suspect]
     Active Substance: ALPRAZOLAM
     Indication: SLEEP DISORDER
     Dosage: 4 MG, DAILY
     Dates: start: 2014
  2. FRONTAL XR [Suspect]
     Active Substance: ALPRAZOLAM
     Indication: GENERALISED ANXIETY DISORDER
     Dosage: 4 MG, UNK

REACTIONS (7)
  - Feeling of despair [Recovered/Resolved]
  - Tachycardia [Unknown]
  - Drug dependence [Not Recovered/Not Resolved]
  - Anxiety [Recovered/Resolved]
  - Choking [Unknown]
  - Feeling abnormal [Unknown]
  - Panic attack [Recovered/Resolved]
